FAERS Safety Report 16945505 (Version 9)
Quarter: 2022Q2

REPORT INFORMATION
  Report Type: Spontaneous
  Country: US (occurrence: US)
  Receive Date: 20191022
  Receipt Date: 20220411
  Transmission Date: 20220721
  Serious: Yes (Hospitalization, Disabling, Other)
  Sender: FDA-Public Use
  Company Number: US-PFIZER INC-2019455558

PATIENT
  Age: 75 Year
  Sex: Male

DRUGS (2)
  1. XELJANZ [Suspect]
     Active Substance: TOFACITINIB CITRATE
     Indication: Arthritis
     Dosage: 5 MG
     Route: 048
  2. XELJANZ [Suspect]
     Active Substance: TOFACITINIB CITRATE
     Dosage: 5 MG, 2X/DAY

REACTIONS (8)
  - Osteomyelitis [Unknown]
  - Toe amputation [Unknown]
  - Tendon rupture [Not Recovered/Not Resolved]
  - Feeling abnormal [Unknown]
  - Finger deformity [Unknown]
  - Localised infection [Unknown]
  - Pain [Unknown]
  - Visual impairment [Unknown]
